FAERS Safety Report 16808081 (Version 1)
Quarter: 2019Q3

REPORT INFORMATION
  Report Type: Spontaneous
  Country: CH (occurrence: CH)
  Receive Date: 20190916
  Receipt Date: 20190916
  Transmission Date: 20191005
  Serious: Yes (Other)
  Sender: FDA-Public Use
  Company Number: CH-US-PROVELL PHARMACEUTICALS LLC-E2B_90070511

PATIENT
  Sex: Female

DRUGS (4)
  1. TIROSINT [Suspect]
     Active Substance: LEVOTHYROXINE SODIUM
     Indication: HYPOTHYROIDISM
     Dosage: DOSE REDUCED IN JUL 2019
     Route: 048
     Dates: end: 201908
  2. TIROSINT [Suspect]
     Active Substance: LEVOTHYROXINE SODIUM
     Indication: HYPOTHYROIDISM
     Dosage: DRUG STARTED IN MAY 2019.
     Route: 048
     Dates: end: 201907
  3. EUTHYROX NF [Suspect]
     Active Substance: LEVOTHYROXINE SODIUM
     Indication: HYPOTHYROIDISM
     Dosage: NEW LACTOSE FREE FORMULATION STARTED IN 2017
     Route: 048
     Dates: end: 201905
  4. ELTROXIN (LEVOTHYROXINE SODIUM) [Suspect]
     Active Substance: LEVOTHYROXINE
     Indication: HYPOTHYROIDISM
     Route: 048
     Dates: start: 2012, end: 2016

REACTIONS (3)
  - Nausea [Not Recovered/Not Resolved]
  - Abnormal weight gain [Not Recovered/Not Resolved]
  - Muscle spasms [Not Recovered/Not Resolved]

NARRATIVE: CASE EVENT DATE: 2012
